FAERS Safety Report 10257871 (Version 1)
Quarter: 2014Q2

REPORT INFORMATION
  Report Type: Spontaneous
  Country: IT (occurrence: IT)
  Receive Date: 20140625
  Receipt Date: 20140625
  Transmission Date: 20141212
  Serious: Yes (Other)
  Sender: FDA-Public Use
  Company Number: IT-ABBVIE-14K-083-1251939-00

PATIENT
  Sex: Female

DRUGS (1)
  1. DEPAKINE [Suspect]
     Indication: DRUG ABUSE
     Route: 055
     Dates: start: 20140617, end: 20140617

REACTIONS (3)
  - Drug abuse [Recovering/Resolving]
  - Incorrect route of drug administration [Unknown]
  - Hallucination [Recovering/Resolving]
